FAERS Safety Report 19217224 (Version 1)
Quarter: 2021Q2

REPORT INFORMATION
  Report Type: Spontaneous
  Country: DE (occurrence: DE)
  Receive Date: 20210505
  Receipt Date: 20210505
  Transmission Date: 20210717
  Serious: Yes (Other)
  Sender: FDA-Public Use
  Company Number: DE-MYLANLABS-2019M1041884

PATIENT
  Age: 53 Year
  Sex: Male
  Weight: 173 kg

DRUGS (6)
  1. RITUXIMAB. [Concomitant]
     Active Substance: RITUXIMAB
     Indication: CENTRAL NERVOUS SYSTEM LYMPHOMA
     Dosage: UNK
     Route: 065
  2. THIOTEPA. [Concomitant]
     Active Substance: THIOTEPA
     Indication: CENTRAL NERVOUS SYSTEM LYMPHOMA
     Dosage: UNK
     Route: 065
  3. METHOTREXATE. [Suspect]
     Active Substance: METHOTREXATE
     Indication: CENTRAL NERVOUS SYSTEM LYMPHOMA
     Dosage: FIRST DOSE
     Route: 065
  4. GLUCARPIDASE [Concomitant]
     Active Substance: GLUCARPIDASE
     Indication: DRUG LEVEL INCREASED
     Dosage: 4000 UNITS
     Route: 065
  5. METHOTREXATE. [Suspect]
     Active Substance: METHOTREXATE
     Indication: CENTRAL NERVOUS SYSTEM LYMPHOMA
     Dosage: 10.85 GRAM DURING THE SECOND COURSE.INFUSION.
  6. CYTARABINE. [Concomitant]
     Active Substance: CYTARABINE
     Indication: CENTRAL NERVOUS SYSTEM LYMPHOMA
     Dosage: UNK
     Route: 065

REACTIONS (3)
  - Blood creatinine increased [Recovering/Resolving]
  - Acute kidney injury [Recovering/Resolving]
  - Drug level increased [Recovered/Resolved]
